FAERS Safety Report 21493757 (Version 1)
Quarter: 2022Q4

REPORT INFORMATION
  Report Type: Report from Study
  Country: US (occurrence: US)
  Receive Date: 20221021
  Receipt Date: 20221021
  Transmission Date: 20230113
  Serious: Yes (Other)
  Sender: FDA-Public Use
  Company Number: US-BAYER-2022A141609

PATIENT
  Age: 63 Year
  Sex: Female

DRUGS (2)
  1. STIVARGA [Suspect]
     Active Substance: REGORAFENIB
     Indication: Hepatobiliary cancer
     Dosage: UNK, FOR 21 DAYS, EVERY 28 DAYS
     Dates: start: 20220922
  2. SUNITINIB MALATE [Concomitant]
     Active Substance: SUNITINIB MALATE
     Indication: Gastrointestinal stromal tumour
     Dosage: 50 MG, QD FOR 2 WEEKS, THEN 2 WEEKS OFF, REPEAT
     Route: 048

REACTIONS (4)
  - Blister [Recovering/Resolving]
  - Gait inability [Recovering/Resolving]
  - Rash macular [Recovering/Resolving]
  - Off label use [None]

NARRATIVE: CASE EVENT DATE: 20220922
